FAERS Safety Report 6406045-4 (Version None)
Quarter: 2009Q4

REPORT INFORMATION
  Report Type: 
  Country: None (occurrence: None)
  Receive Date: 20091019
  Receipt Date: 20091009
  Transmission Date: 20100525
  Serious: Yes (Other)
  Sender: FDA-Public Use
  Company Number: DE-AMGEN-STX356663

PATIENT
  Sex: Female
  Weight: 65 kg

DRUGS (6)
  1. MIMPARA [Suspect]
     Indication: HYPERPARATHYROIDISM PRIMARY
     Route: 048
     Dates: start: 20050501, end: 20090803
  2. NOVODIGAL [Concomitant]
  3. TORASEMIDE [Concomitant]
  4. SPIRONOLACTONE [Concomitant]
  5. SIMVASTATIN [Concomitant]
  6. THYRONAJOD [Concomitant]

REACTIONS (8)
  - ASTHENIA [None]
  - BONE DISORDER [None]
  - DECREASED APPETITE [None]
  - GAIT DISTURBANCE [None]
  - HIGH TURNOVER OSTEOPATHY [None]
  - MYALGIA [None]
  - OSTEOARTHRITIS [None]
  - PAIN IN EXTREMITY [None]
